FAERS Safety Report 21640386 (Version 1)
Quarter: 2022Q4

REPORT INFORMATION
  Report Type: Spontaneous
  Country: US (occurrence: US)
  Receive Date: 20221124
  Receipt Date: 20221124
  Transmission Date: 20230112
  Serious: Yes (Other)
  Sender: FDA-Public Use
  Company Number: US-JNJFOC-20221153184

PATIENT
  Sex: Male

DRUGS (2)
  1. HALDOL [Suspect]
     Active Substance: HALOPERIDOL
     Indication: Product used for unknown indication
     Route: 030
  2. HALDOL [Suspect]
     Active Substance: HALOPERIDOL
     Dosage: AT NIGHT TIME
     Route: 030
     Dates: start: 201711

REACTIONS (1)
  - Drug abuse [Unknown]
